FAERS Safety Report 5863842-1 (Version None)
Quarter: 2008Q3

REPORT INFORMATION
  Report Type: 
  Country: None (occurrence: None)
  Receive Date: 20080827
  Receipt Date: 20080814
  Transmission Date: 20090109
  Serious: Yes (Disabling)
  Sender: FDA-Public Use
  Company Number: 8036000

PATIENT
  Age: 87 Year
  Sex: Female
  Weight: 49.77 kg

DRUGS (3)
  1. KEPPRA [Suspect]
     Dosage: 500 MG 2/D PO
     Route: 048
     Dates: start: 20080708
  2. DEPAKOTE [Suspect]
     Indication: CONVULSION
     Dosage: 125 MG 4/D PO
     Route: 048
     Dates: start: 20080708
  3. ARICEPT [Concomitant]

REACTIONS (10)
  - BLOOD GLUCOSE INCREASED [None]
  - CONVULSION [None]
  - DISORIENTATION [None]
  - EYE ROLLING [None]
  - FAECAL INCONTINENCE [None]
  - HYPERHIDROSIS [None]
  - RHINORRHOEA [None]
  - SALIVARY HYPERSECRETION [None]
  - URINARY INCONTINENCE [None]
  - WHEELCHAIR USER [None]
